FAERS Safety Report 5030963-5 (Version None)
Quarter: 2006Q2

REPORT INFORMATION
  Report Type: 
  Country: None (occurrence: None)
  Receive Date: 20060621
  Receipt Date: 20060614
  Transmission Date: 20061013
  Serious: Yes (Hospitalization)
  Sender: FDA-Public Use
  Company Number: US-JNJFOC-20060603577

PATIENT
  Sex: Female
  Weight: 52.16 kg

DRUGS (2)
  1. ORTHO TRI-CYCLEN [Suspect]
     Indication: MENSTRUAL DISORDER
     Route: 062
  2. ORTHO TRI-CYCLEN [Suspect]
     Indication: CONTRACEPTION
     Route: 062

REACTIONS (1)
  - PANCREATITIS [None]
